FAERS Safety Report 22292638 (Version 1)
Quarter: 2023Q2

REPORT INFORMATION
  Report Type: Spontaneous
  Country: ES (occurrence: ES)
  Receive Date: 20230508
  Receipt Date: 20230508
  Transmission Date: 20230721
  Serious: Yes (Other)
  Sender: FDA-Public Use
  Company Number: ES-SA-SAC20230425000166

PATIENT
  Sex: Male

DRUGS (3)
  1. ISATUXIMAB [Suspect]
     Active Substance: ISATUXIMAB
     Dosage: UNK
     Route: 065
  2. POTASSIUM [Concomitant]
     Active Substance: POTASSIUM
     Indication: Thrombocytopenia
     Dosage: 27 MG/M2
  3. CARFILZOMIB [Concomitant]
     Active Substance: CARFILZOMIB
     Dosage: UNK

REACTIONS (3)
  - Plasma cell leukaemia [Unknown]
  - Thrombocytopenia [Not Recovered/Not Resolved]
  - Neoplasm progression [Unknown]
